FAERS Safety Report 10335989 (Version 1)
Quarter: 2014Q3

REPORT INFORMATION
  Report Type: Spontaneous
  Country: US (occurrence: US)
  Receive Date: 20140723
  Receipt Date: 20140723
  Transmission Date: 20150326
  Serious: No
  Sender: FDA-Public Use
  Company Number: US-BRISTOL-MYERS SQUIBB COMPANY-19436401

PATIENT
  Age: 52 Year
  Sex: Female
  Weight: 104.31 kg

DRUGS (1)
  1. COUMADIN [Suspect]
     Active Substance: WARFARIN SODIUM
     Indication: PULMONARY EMBOLISM
     Dates: start: 2013

REACTIONS (1)
  - International normalised ratio abnormal [Unknown]

NARRATIVE: CASE EVENT DATE: 2013
